FAERS Safety Report 17182163 (Version 1)
Quarter: 2019Q4

REPORT INFORMATION
  Report Type: Spontaneous
  Country: JP (occurrence: JP)
  Receive Date: 20191220
  Receipt Date: 20191220
  Transmission Date: 20200122
  Serious: Yes (Other)
  Sender: FDA-Public Use
  Company Number: JP-TEVA-2019-JP-1156526

PATIENT
  Age: 68 Year
  Sex: Male

DRUGS (4)
  1. METHYLPREDNISOLONE. [Suspect]
     Active Substance: METHYLPREDNISOLONE
     Indication: PEMPHIGUS
     Dosage: ADMINISTERED AS A PULSE THERAPY
     Route: 042
  2. PREDNISOLONE. [Suspect]
     Active Substance: PREDNISOLONE
     Indication: PEMPHIGUS
     Route: 065
  3. PREDNISOLONE. [Suspect]
     Active Substance: PREDNISOLONE
     Indication: PEMPHIGUS
     Dosage: THE DOSE WAS TAPERED TO 60MG/DAY
     Route: 065
  4. IGG [Concomitant]
     Active Substance: HUMAN IMMUNOGLOBULIN G
     Dosage: ADMINISTERED AT A DOSE OF 0.4G/KG FOR 5 DAYS
     Route: 042

REACTIONS (2)
  - Hepatic function abnormal [Recovering/Resolving]
  - Cytomegalovirus infection [Recovering/Resolving]
